FAERS Safety Report 4914103-6 (Version None)
Quarter: 2006Q1

REPORT INFORMATION
  Report Type: 
  Country: None (occurrence: None)
  Receive Date: 20060213
  Receipt Date: 20060207
  Transmission Date: 20060701
  Serious: Yes (Hospitalization, Other)
  Sender: FDA-Public Use
  Company Number: 200610168BVD

PATIENT
  Sex: Male

DRUGS (1)
  1. TRASYLOL [Suspect]
     Indication: CORONARY ARTERY SURGERY
     Dates: start: 19960501

REACTIONS (2)
  - BALANCE DISORDER [None]
  - CEREBROVASCULAR ACCIDENT [None]
